FAERS Safety Report 14337850 (Version 1)
Quarter: 2017Q4

REPORT INFORMATION
  Report Type: Spontaneous
  Country: CO (occurrence: CO)
  Receive Date: 20171229
  Receipt Date: 20171229
  Transmission Date: 20180321
  Serious: Yes (Other)
  Sender: FDA-Public Use
  Company Number: CO-BAYER-2017-248931

PATIENT
  Age: 33 Year
  Sex: Female

DRUGS (1)
  1. QLAIRA [Suspect]
     Active Substance: DIENOGEST\ESTRADIOL VALERATE
     Indication: CONTRACEPTION
     Dosage: UNK
     Route: 048
     Dates: start: 2013

REACTIONS (5)
  - Diarrhoea [None]
  - Menstruation delayed [None]
  - Headache [None]
  - Nasopharyngitis [None]
  - Benign breast neoplasm [None]

NARRATIVE: CASE EVENT DATE: 201708
